FAERS Safety Report 15686139 (Version 1)
Quarter: 2018Q4

REPORT INFORMATION
  Report Type: Spontaneous
  Country: ES (occurrence: ES)
  Receive Date: 20181204
  Receipt Date: 20181204
  Transmission Date: 20190205
  Serious: Yes (Other)
  Sender: FDA-Public Use
  Company Number: ES-BAUSCH-BL-2018-033812

PATIENT
  Age: 59 Year
  Sex: Male

DRUGS (5)
  1. IRINOTECAN [Suspect]
     Active Substance: IRINOTECAN
     Dosage: ONE CYCLIC, DOSAGE WAS CHANGED
     Route: 065
     Dates: start: 201804, end: 201804
  2. FLUOROURACIL. [Suspect]
     Active Substance: FLUOROURACIL
     Indication: COLON CANCER STAGE III
     Route: 065
     Dates: start: 201710
  3. ZALTRAP [Suspect]
     Active Substance: ZIV-AFLIBERCEPT
     Indication: COLON CANCER STAGE III
     Route: 065
     Dates: start: 201710
  4. IRINOTECAN [Suspect]
     Active Substance: IRINOTECAN
     Indication: COLON CANCER STAGE III
     Dosage: ONE CYCLIC
     Route: 065
     Dates: start: 201710, end: 201710
  5. FOLINIC ACID [Suspect]
     Active Substance: LEUCOVORIN
     Indication: COLON CANCER STAGE III
     Route: 065
     Dates: start: 201710

REACTIONS (3)
  - Mucosal inflammation [Unknown]
  - Oral discomfort [Unknown]
  - Neutropenia [Unknown]

NARRATIVE: CASE EVENT DATE: 201804
